FAERS Safety Report 7341611-3 (Version None)
Quarter: 2011Q1

REPORT INFORMATION
  Report Type: 
  Country: None (occurrence: None)
  Receive Date: 20110228
  Receipt Date: 20110217
  Transmission Date: 20110831
  Serious: Yes (Other)
  Sender: FDA-Public Use
  Company Number: LEO-2011-00183

PATIENT
  Age: 78 Year
  Sex: Female

DRUGS (7)
  1. ACETAMINOPHEN [Concomitant]
  2. NEXIUM [Concomitant]
  3. INNOHEP [Suspect]
     Indication: THROMBOSIS PROPHYLAXIS
     Dosage: 1 DOSAGE FORMS (4500 IU, 1 D) SUBCUTANEOUS
     Route: 058
     Dates: start: 20110201
  4. IMOVANE (ZOPICLONE) [Concomitant]
  5. TRAMADOL HCL [Concomitant]
  6. MICARDIS [Concomitant]
  7. TAHOR (ATORVASTATIN CALCIUM) (10 MILLIGRAM) [Concomitant]

REACTIONS (1)
  - PHLEBITIS [None]
